FAERS Safety Report 5788862-7 (Version None)
Quarter: 2008Q2

REPORT INFORMATION
  Report Type: 
  Country: None (occurrence: None)
  Receive Date: 20080623
  Receipt Date: 20080606
  Transmission Date: 20081010
  Serious: Yes (Death, Life-Threatening, Hospitalization)
  Sender: FDA-Public Use
  Company Number: CIP08001010

PATIENT
  Age: 32 Year
  Sex: Female

DRUGS (2)
  1. FURADANTIN [Suspect]
     Indication: URINARY TRACT DISORDER
     Dosage: 300 MG DAILY, ORAL
     Route: 048
     Dates: start: 19730201, end: 19730201
  2. ORAL CONTRACEPTIVE NOS (ORAL CONTRACEPTIVE NOS) [Concomitant]

REACTIONS (3)
  - HAEMOLYTIC ANAEMIA [None]
  - PETECHIAE [None]
  - THROMBOCYTOPENIA [None]
